FAERS Safety Report 23493453 (Version 1)
Quarter: 2024Q1

REPORT INFORMATION
  Report Type: Spontaneous
  Country: CA (occurrence: None)
  Receive Date: 20240207
  Receipt Date: 20240207
  Transmission Date: 20240409
  Serious: Yes (Other)
  Sender: FDA-Public Use
  Company Number: CA-PFIZER INC-202400032768

PATIENT
  Age: 47 Year
  Sex: Female

DRUGS (4)
  1. METHOTREXATE [Suspect]
     Active Substance: METHOTREXATE
     Indication: Product used for unknown indication
     Dates: start: 2019
  2. IMURAN [Concomitant]
     Active Substance: AZATHIOPRINE
     Dates: start: 2018
  3. PREDNISONE ACETATE [Concomitant]
     Active Substance: PREDNISONE ACETATE
  4. RITUXAN [Concomitant]
     Active Substance: RITUXIMAB
     Dosage: UNK, EVERY 6 MONTHS
     Dates: start: 2020, end: 202308

REACTIONS (2)
  - Pneumonia [Unknown]
  - Drug intolerance [Unknown]
